FAERS Safety Report 8790467 (Version 1)
Quarter: 2012Q4

REPORT INFORMATION
  Report Type: Spontaneous
  Country: US (occurrence: None)
  Receive Date: 20120911
  Receipt Date: 20120911
  Transmission Date: 20130627
  Serious: Yes (Hospitalization)
  Sender: FDA-Public Use
  Company Number: None

PATIENT
  Age: 90 Year
  Sex: Male
  Weight: 70.9 kg

DRUGS (1)
  1. METOPROLOL [Suspect]
     Indication: HYPERTENSION
     Dosage: 12.5 mg BID PO
     Route: 048
     Dates: start: 20101028, end: 20120829

REACTIONS (3)
  - Syncope [None]
  - Bradycardia [None]
  - Atrioventricular block [None]
